FAERS Safety Report 4304570-3 (Version None)
Quarter: 2004Q1

REPORT INFORMATION
  Report Type: 
  Country: None (occurrence: None)
  Receive Date: 20040224
  Receipt Date: 20040211
  Transmission Date: 20041129
  Serious: Yes (Other)
  Sender: FDA-Public Use
  Company Number: NSADSS2001031880

PATIENT
  Age: 65 Year
  Sex: Female

DRUGS (3)
  1. REMICADE [Suspect]
     Indication: RHEUMATOID ARTHRITIS
     Dosage: , 1 IN 1 AS NECESSARY, INTRAVENOUS DRIP
     Route: 041
     Dates: start: 20000110, end: 20010720
  2. CELEBREX [Concomitant]
  3. METHOTREXATE [Concomitant]

REACTIONS (3)
  - PLEURAL EFFUSION [None]
  - PLEURISY [None]
  - PULMONARY TUBERCULOSIS [None]
